FAERS Safety Report 5047308-7 (Version None)
Quarter: 2006Q3

REPORT INFORMATION
  Report Type: 
  Country: None (occurrence: None)
  Receive Date: 20060711
  Receipt Date: 20060629
  Transmission Date: 20061208
  Serious: Yes (Other)
  Sender: FDA-Public Use
  Company Number: 2006AP03050

PATIENT
  Age: 68 Year
  Sex: Male

DRUGS (4)
  1. XYLOCAINE [Suspect]
     Indication: ANAESTHESIA
     Route: 045
     Dates: start: 20060628, end: 20060628
  2. PRIVINA [Suspect]
     Route: 045
     Dates: start: 20060628, end: 20060628
  3. XYLOCAINE [Concomitant]
     Indication: ANAESTHESIA
     Route: 045
     Dates: start: 20060628, end: 20060628
  4. XYLOCAINE [Concomitant]
     Route: 049
     Dates: start: 20060628, end: 20060628

REACTIONS (6)
  - CHOKING SENSATION [None]
  - DYSPNOEA [None]
  - PALLOR [None]
  - PHARYNGEAL OEDEMA [None]
  - SOMNOLENCE [None]
  - WHEEZING [None]
